FAERS Safety Report 18997732 (Version 2)
Quarter: 2021Q3

REPORT INFORMATION
  Report Type: Spontaneous
  Country: JP (occurrence: JP)
  Receive Date: 20210311
  Receipt Date: 20210805
  Transmission Date: 20211014
  Serious: Yes (Other)
  Sender: FDA-Public Use
  Company Number: JP-PFIZER INC-2021198959

PATIENT
  Age: 35 Year
  Sex: Female

DRUGS (2)
  1. PROVERA [Suspect]
     Active Substance: MEDROXYPROGESTERONE ACETATE
     Dosage: 400 MG, DAILY
     Route: 048
  2. TEGAFUR/URACIL [Concomitant]
     Active Substance: TEGAFUR\URACIL
     Dosage: UNK 400 MG AND 896 MG/DAY

REACTIONS (1)
  - Acute generalised exanthematous pustulosis [Recovered/Resolved]
